FAERS Safety Report 10012966 (Version 1)
Quarter: 2014Q1

REPORT INFORMATION
  Report Type: Spontaneous
  Country: CA (occurrence: CA)
  Receive Date: 20140314
  Receipt Date: 20140314
  Transmission Date: 20141002
  Serious: Yes (Other)
  Sender: FDA-Public Use
  Company Number: CA-ACTAVIS-2014-04494

PATIENT
  Age: 65 Year
  Sex: Female

DRUGS (2)
  1. LETROZOLE (UNKNOWN) [Suspect]
     Indication: PRODUCT USED FOR UNKNOWN INDICATION
     Dosage: DOSAGE FORM - TABLET
     Route: 048
  2. TAMOXIFEN (UNKNOWN) [Suspect]
     Indication: PRODUCT USED FOR UNKNOWN INDICATION
     Dosage: DOSAGE FORM - TABLET
     Route: 065

REACTIONS (2)
  - Breast cancer [Unknown]
  - Neoplasm progression [Unknown]
